FAERS Safety Report 8838013 (Version 1)
Quarter: 2012Q4

REPORT INFORMATION
  Report Type: 
  Country: US (occurrence: US)
  Receive Date: 20121012
  Receipt Date: 20121012
  Transmission Date: 20130627
  Serious: Yes (Death)
  Sender: FDA-Public Use
  Company Number: US-ROCHE-1111279

PATIENT
  Sex: Female

DRUGS (3)
  1. NUTROPIN [Suspect]
     Indication: ADRENAL INSUFFICIENCY
     Dosage: 0.2 cc
     Route: 058
     Dates: start: 200605, end: 200805
  2. NUTROPIN [Suspect]
     Indication: ADRENAL INSUFFICIENCY
  3. NUTROPIN [Suspect]
     Indication: GROWTH HORMONE DEFICIENCY

REACTIONS (1)
  - Death [Fatal]
